FAERS Safety Report 5512868-6 (Version None)
Quarter: 2007Q4

REPORT INFORMATION
  Report Type: 
  Country: None (occurrence: None)
  Receive Date: 20071108
  Receipt Date: 20071019
  Transmission Date: 20080405
  Serious: Yes (Other)
  Sender: FDA-Public Use
  Company Number: 02100-JPN-07-0661

PATIENT
  Sex: 0

DRUGS (2)
  1. CILOSTAZOL [Suspect]
     Dosage: ORAL
     Route: 048
  2. ALLOPURINOL [Concomitant]

REACTIONS (1)
  - MYELODYSPLASTIC SYNDROME [None]
